FAERS Safety Report 10094312 (Version 1)
Quarter: 2014Q2

REPORT INFORMATION
  Report Type: Spontaneous
  Country: ES (occurrence: ES)
  Receive Date: 20140422
  Receipt Date: 20140422
  Transmission Date: 20141212
  Serious: Yes (Other)
  Sender: FDA-Public Use
  Company Number: ES-SA-2014SA048429

PATIENT
  Age: 32 Year
  Sex: Female
  Weight: 65 kg

DRUGS (1)
  1. THYMOGLOBULINE [Suspect]
     Indication: APLASIA
     Route: 042
     Dates: start: 20131019, end: 20131022

REACTIONS (1)
  - Convulsion [Recovered/Resolved]
